FAERS Safety Report 6208932-9 (Version None)
Quarter: 2009Q2

REPORT INFORMATION
  Report Type: 
  Country: None (occurrence: None)
  Receive Date: 20090529
  Receipt Date: 20090519
  Transmission Date: 20091009
  Serious: Yes (Death)
  Sender: FDA-Public Use
  Company Number: TW-MERCK-0905TWN00008

PATIENT
  Age: 64 Year
  Sex: Female

DRUGS (1)
  1. CANCIDAS [Suspect]
     Route: 051
     Dates: start: 20080601

REACTIONS (2)
  - RESPIRATORY FAILURE [None]
  - SEPSIS [None]
